FAERS Safety Report 7788877-3 (Version None)
Quarter: 2011Q3

REPORT INFORMATION
  Report Type: 
  Country: None (occurrence: None)
  Receive Date: 20110930
  Receipt Date: 20110920
  Transmission Date: 20111222
  Serious: Yes (Hospitalization)
  Sender: FDA-Public Use
  Company Number: DE-ROCHE-804261

PATIENT
  Age: 59 Year
  Sex: Female
  Weight: 86 kg

DRUGS (9)
  1. AVASTIN [Suspect]
     Indication: RECTAL CANCER
     Route: 042
     Dates: start: 20110726, end: 20110906
  2. LEUCOVORIN CALCIUM [Concomitant]
     Indication: RECTAL CANCER
     Route: 042
     Dates: start: 20110726, end: 20110823
  3. FLUOROURACIL [Suspect]
     Route: 042
     Dates: start: 20110728, end: 20110729
  4. DEXAMETHASONE [Concomitant]
     Indication: RECTAL CANCER
     Route: 042
     Dates: start: 20110726, end: 20110906
  5. FLUOROURACIL [Suspect]
     Indication: RECTAL CANCER
     Route: 042
     Dates: start: 20110726, end: 20110726
  6. LEUCOVORIN CALCIUM [Concomitant]
     Route: 042
     Dates: start: 20110823, end: 20110906
  7. OXALIPLATIN [Concomitant]
     Indication: RECTAL CANCER
     Route: 042
     Dates: start: 20110726, end: 20110906
  8. FLUOROURACIL [Suspect]
     Route: 042
     Dates: start: 20110823, end: 20110906
  9. TROPISETRON [Concomitant]
     Indication: RECTAL CANCER
     Route: 042

REACTIONS (3)
  - ANASTOMOTIC ULCER [None]
  - PAIN [None]
  - IMPAIRED HEALING [None]
